FAERS Safety Report 9805864 (Version 1)
Quarter: 2014Q1

REPORT INFORMATION
  Report Type: Spontaneous
  Country: US (occurrence: US)
  Receive Date: 20140109
  Receipt Date: 20140109
  Transmission Date: 20141002
  Serious: Yes (Death)
  Sender: FDA-Public Use
  Company Number: US-ASTRAZENECA-2014SE01359

PATIENT
  Age: 50 Year
  Sex: Female

DRUGS (8)
  1. QUETIAPINE [Suspect]
     Route: 048
  2. CARBAMAZEPINE [Suspect]
  3. DIAZEPAM [Suspect]
  4. MORPHINE [Suspect]
  5. TRAMADOL [Suspect]
  6. CYCLOBENZAPRINE [Suspect]
  7. DIPHENHYDRAMINE [Suspect]
  8. METOCLOPRAMIDE [Suspect]

REACTIONS (2)
  - Toxicity to various agents [Fatal]
  - Drug abuse [Fatal]
